FAERS Safety Report 6060054-6 (Version None)
Quarter: 2009Q1

REPORT INFORMATION
  Report Type: 
  Country: None (occurrence: None)
  Receive Date: 20090128
  Receipt Date: 20090116
  Transmission Date: 20090719
  Serious: Yes (Death)
  Sender: FDA-Public Use
  Company Number: 2009S1000071

PATIENT
  Age: 51 Year
  Sex: Male

DRUGS (9)
  1. DURACLON [Suspect]
     Dosage: PO
     Route: 048
     Dates: end: 20070101
  2. ASPIRIN [Suspect]
     Dosage: PO
     Route: 048
     Dates: end: 20070101
  3. LISINOPRIL [Suspect]
     Dosage: PO
     Route: 048
     Dates: end: 20070101
  4. MONTELUKAST SODIUM [Suspect]
     Dosage: PO
     Route: 048
     Dates: end: 20070101
  5. FLUOXETINE HCL [Suspect]
     Dosage: PO
     Route: 048
     Dates: end: 20070101
  6. LAMOTRIGINE [Suspect]
     Dosage: PO
     Route: 048
     Dates: end: 20070101
  7. POTASSIUM CHLORIDE [Suspect]
     Dosage: PO
     Route: 048
     Dates: end: 20070101
  8. TRAMADOL HCL [Suspect]
     Dosage: PO
     Route: 048
     Dates: end: 20070101
  9. HYDROCHLOROTHIAZIDE [Suspect]
     Dosage: PO
     Route: 048
     Dates: end: 20070101

REACTIONS (1)
  - COMPLETED SUICIDE [None]
